FAERS Safety Report 7314246-6 (Version None)
Quarter: 2011Q1

REPORT INFORMATION
  Report Type: 
  Country: None (occurrence: None)
  Receive Date: 20110225
  Receipt Date: 20100618
  Transmission Date: 20110831
  Serious: Yes (Other)
  Sender: FDA-Public Use
  Company Number: US-MYLANLABS-2010S1011139

PATIENT
  Age: 21 Year
  Sex: Male

DRUGS (2)
  1. SOTRET [Suspect]
  2. AMNESTEEM [Suspect]

REACTIONS (2)
  - NAUSEA [None]
  - RECTAL HAEMORRHAGE [None]
